FAERS Safety Report 8180048-4 (Version None)
Quarter: 2012Q1

REPORT INFORMATION
  Report Type: 
  Country: None (occurrence: None)
  Receive Date: 20120302
  Receipt Date: 20120302
  Transmission Date: 20120608
  Serious: Yes (Hospitalization)
  Sender: FDA-Public Use
  Company Number: None

PATIENT
  Age: 37 Year
  Sex: Female
  Weight: 63.502 kg

DRUGS (2)
  1. COGENTIN [Suspect]
     Indication: RESTLESSNESS
     Dosage: 1.0 MG
     Route: 048
     Dates: start: 20110101, end: 20110501
  2. COGENTIN [Suspect]
     Indication: TREMOR
     Dosage: 1.0 MG
     Route: 048
     Dates: start: 20110101, end: 20110501

REACTIONS (5)
  - URINARY RETENTION [None]
  - GAIT DISTURBANCE [None]
  - TREMOR [None]
  - RESTLESSNESS [None]
  - FEELING ABNORMAL [None]
